FAERS Safety Report 9711689 (Version 2)
Quarter: 2013Q4

REPORT INFORMATION
  Report Type: Spontaneous
  Country: CN (occurrence: CN)
  Receive Date: 20131126
  Receipt Date: 20131203
  Transmission Date: 20140711
  Serious: Yes (Other)
  Sender: FDA-Public Use
  Company Number: CN-BAYER-2013-140036

PATIENT
  Age: 72 Year
  Sex: Male

DRUGS (2)
  1. GLUCOBAY [Suspect]
     Indication: DIABETES MELLITUS
     Dosage: 50 MG, TID
     Route: 048
     Dates: start: 2009
  2. NOVOLIN 30R [Concomitant]

REACTIONS (2)
  - Venous insufficiency [Not Recovered/Not Resolved]
  - Penile oedema [Not Recovered/Not Resolved]
